FAERS Safety Report 19949437 (Version 3)
Quarter: 2025Q1

REPORT INFORMATION
  Report Type: Report from Study
  Country: CU (occurrence: CU)
  Receive Date: 20211013
  Receipt Date: 20250121
  Transmission Date: 20250409
  Serious: Yes (Death, Life-Threatening, Hospitalization, Disabling)
  Sender: ROCHE
  Company Number: CU-ROCHE-2932691

PATIENT
  Age: 79 Year
  Sex: Female
  Weight: 55.0 kg

DRUGS (13)
  1. ALECTINIB [Suspect]
     Active Substance: ALECTINIB
     Indication: Non-small cell lung cancer metastatic
     Dosage: START DATE OF MOST RECENT DOSE OF STUDY DRUG RIOR TO AE: 06/OCT/2021 (1200 MG)
     Route: 048
     Dates: start: 20210818
  2. ENALAPRIL [Concomitant]
     Active Substance: ENALAPRIL
     Indication: Hypertension
     Route: 048
     Dates: start: 2009, end: 20211012
  3. PENTOXIFYLLINE [Concomitant]
     Active Substance: PENTOXIFYLLINE
     Indication: Peripheral venous disease
     Route: 048
     Dates: start: 2019, end: 20211012
  4. CIPROFLOXACIN [Concomitant]
     Active Substance: CIPROFLOXACIN
     Route: 042
     Dates: start: 20211007, end: 20211012
  5. METRONIDAZOLE [Concomitant]
     Active Substance: METRONIDAZOLE
     Route: 042
     Dates: start: 20211007, end: 20211012
  6. NADROPARIN CALCIUM [Concomitant]
     Active Substance: NADROPARIN CALCIUM
     Dosage: 0.6 OTHER
     Route: 058
     Dates: start: 20211007, end: 20211012
  7. MIDAZOLAM [Concomitant]
     Active Substance: MIDAZOLAM
     Dosage: 100 AMPULE
     Route: 042
     Dates: start: 20211008, end: 20211012
  8. DICLOFENAC [Concomitant]
     Active Substance: DICLOFENAC
     Route: 042
     Dates: start: 20211007, end: 20211008
  9. FENTANYL [Concomitant]
     Active Substance: FENTANYL
     Dosage: 0.15 AMPULE
     Route: 042
     Dates: start: 20211008, end: 20211012
  10. NOREPINEPHRINE [Concomitant]
     Active Substance: NOREPINEPHRINE
     Route: 042
     Dates: start: 20211008, end: 20211011
  11. RANITIDINE [Concomitant]
     Active Substance: RANITIDINE
     Dates: start: 20211010, end: 20211011
  12. FUROSEMIDE [Concomitant]
     Active Substance: FUROSEMIDE
     Route: 042
     Dates: start: 20211010, end: 20211010
  13. EPINEPHRINE [Concomitant]
     Active Substance: EPINEPHRINE
     Route: 042
     Dates: start: 20211011, end: 20211011

REACTIONS (3)
  - Intestinal obstruction [Fatal]
  - Septic shock [Fatal]
  - Diverticulitis [Not Recovered/Not Resolved]

NARRATIVE: CASE EVENT DATE: 20211007
